FAERS Safety Report 6575130-9 (Version None)
Quarter: 2010Q1

REPORT INFORMATION
  Report Type: 
  Country: None (occurrence: None)
  Receive Date: 20100201
  Receipt Date: 20100118
  Transmission Date: 20100710
  Serious: Yes (Hospitalization)
  Sender: FDA-Public Use
  Company Number: 1000011489

PATIENT
  Age: 58 Year
  Sex: Male

DRUGS (6)
  1. ESCITALOPRAM OXALATE [Suspect]
     Dosage: 5 MG (5 MG, 1 IN 1 D)
     Dates: start: 20060101, end: 20060204
  2. ENALAPRIL MALEATE [Suspect]
     Dosage: 10-25 MG DAILY
     Dates: start: 20060101
  3. BISOPROLOL [Concomitant]
  4. ZOPICLON [Concomitant]
  5. LORAZEPAM [Concomitant]
  6. LORAZEPAM [Concomitant]

REACTIONS (2)
  - DRUG INTERACTION [None]
  - HYPONATRAEMIA [None]
